FAERS Safety Report 10089806 (Version 4)
Quarter: 2014Q2

REPORT INFORMATION
  Report Type: Spontaneous
  Country: US (occurrence: US)
  Receive Date: 20140421
  Receipt Date: 20140620
  Transmission Date: 20141212
  Serious: Yes (Other)
  Sender: FDA-Public Use
  Company Number: ALCN2014US002424

PATIENT
  Age: 60 Year
  Sex: Female
  Weight: 118.82 kg

DRUGS (7)
  1. ATROPINE SULFATE [Suspect]
     Indication: CATARACT OPERATION
     Dosage: UNK
     Route: 047
  2. CILOXAN [Suspect]
     Indication: CATARACT OPERATION
     Dosage: UNK
     Route: 047
  3. BSS PLUS [Suspect]
     Indication: CATARACT OPERATION
     Dosage: UNK
     Route: 047
     Dates: start: 20140407, end: 20140407
  4. BSS PLUS [Suspect]
     Indication: OFF LABEL USE
  5. BETADINE [Suspect]
     Indication: CATARACT OPERATION
     Dosage: UNK
     Route: 047
     Dates: start: 20140407, end: 20140407
  6. DUREZOL [Suspect]
     Indication: CATARACT OPERATION
     Dosage: 1 GTT, BID
     Route: 047
     Dates: start: 20140407
  7. VIGAMOX [Suspect]
     Indication: CATARACT OPERATION
     Dosage: 1 GTT, TID
     Route: 047
     Dates: start: 20140407

REACTIONS (2)
  - Endophthalmitis [Not Recovered/Not Resolved]
  - Off label use [Not Recovered/Not Resolved]
